FAERS Safety Report 7621491-9 (Version None)
Quarter: 2011Q3

REPORT INFORMATION
  Report Type: 
  Country: None (occurrence: None)
  Receive Date: 20110719
  Receipt Date: 20110715
  Transmission Date: 20111222
  Serious: No
  Sender: FDA-Public Use
  Company Number: AE-B.I. PHARMACEUTICALS,INC./RIDGEFIELD-2011-BP-17795BP

PATIENT
  Age: 75 Year
  Sex: Male

DRUGS (9)
  1. BISOPROL [Concomitant]
     Indication: CARDIAC DISORDER
     Dosage: 25 MG
     Dates: start: 20100101
  2. PRADAXA [Suspect]
     Indication: ATRIAL FIBRILLATION
     Dosage: 300 MG
     Route: 048
     Dates: start: 20110401
  3. CALCIUM CARBONATE [Concomitant]
     Indication: ROUTINE HEALTH MAINTENANCE
     Dates: start: 20050101
  4. LEVOTHYROXINE SODIUM [Concomitant]
     Indication: HYPOTHYROIDISM
     Dosage: 137 MCG
  5. DIGOXIN [Concomitant]
     Indication: ATRIAL FIBRILLATION
     Dosage: 0.125 MG
     Dates: start: 20110401
  6. ASPIRIN [Concomitant]
     Indication: ROUTINE HEALTH MAINTENANCE
     Dosage: 81 MG
     Dates: start: 20050101
  7. TORSEMIDE [Concomitant]
     Indication: OEDEMA
     Dosage: 20 MG
     Dates: start: 20110101
  8. PLAVIX [Concomitant]
     Indication: CARDIAC DISORDER
     Dosage: 75 MG
     Dates: start: 20100101
  9. ALPRAZOLAM [Concomitant]
     Indication: ANXIETY
     Dosage: 0.25 MG
     Dates: start: 20100101

REACTIONS (2)
  - DISCOMFORT [None]
  - ANORECTAL DISCOMFORT [None]
